FAERS Safety Report 4961781-1 (Version None)
Quarter: 2006Q1

REPORT INFORMATION
  Report Type: 
  Country: None (occurrence: None)
  Receive Date: 20060329
  Receipt Date: 20060320
  Transmission Date: 20060701
  Serious: Yes (Other)
  Sender: FDA-Public Use
  Company Number: 2006-03-1317

PATIENT
  Age: 11 Year
  Sex: Male

DRUGS (1)
  1. ASMANEX TWISTHALER [Suspect]
     Dosage: INHALATION
     Route: 055
     Dates: end: 20051201

REACTIONS (4)
  - ABDOMINAL PAIN UPPER [None]
  - COELIAC DISEASE [None]
  - CONSTIPATION [None]
  - IRRITABILITY [None]
